FAERS Safety Report 25940882 (Version 1)
Quarter: 2025Q4

REPORT INFORMATION
  Report Type: Spontaneous
  Country: US (occurrence: None)
  Receive Date: 20251017
  Receipt Date: 20251017
  Transmission Date: 20260117
  Serious: Yes (Death)
  Sender: FDA-CTU
  Company Number: None

PATIENT
  Age: 71 Year
  Sex: Male
  Weight: 99.2 kg

DRUGS (3)
  1. DESVENLAFAXINE [Suspect]
     Active Substance: DESVENLAFAXINE
     Indication: Major depression
     Dosage: FREQUENCY : DAILY;?
     Route: 048
     Dates: start: 20250808, end: 20250825
  2. EFFEXOR [Suspect]
     Active Substance: VENLAFAXINE HYDROCHLORIDE
  3. WELLBUTRIN XL [Suspect]
     Active Substance: BUPROPION HYDROCHLORIDE

REACTIONS (10)
  - Completed suicide [None]
  - Therapeutic product effect decreased [None]
  - Rash [None]
  - Constipation [None]
  - Anxiety [None]
  - Tearfulness [None]
  - Irritability [None]
  - Tachyphrenia [None]
  - Feeling of despair [None]
  - Product communication issue [None]

NARRATIVE: CASE EVENT DATE: 20250825
